FAERS Safety Report 10065483 (Version 27)
Quarter: 2017Q2

REPORT INFORMATION
  Report Type: Report from Study
  Country: CA (occurrence: CA)
  Receive Date: 20140408
  Receipt Date: 20170420
  Transmission Date: 20170829
  Serious: Yes (Hospitalization, Other)
  Sender: FDA-Public Use
  Company Number: PHHY2013CA013084

PATIENT
  Age: 47 Year
  Sex: Male

DRUGS (7)
  1. SANDOSTATIN [Suspect]
     Active Substance: OCTREOTIDE ACETATE
     Indication: CROHN^S DISEASE
     Dosage: UNK UNK, TID
     Route: 058
     Dates: start: 20121115, end: 201212
  2. SANDOSTATIN LAR DEPOT [Suspect]
     Active Substance: OCTREOTIDE ACETATE
     Dosage: 20 MG, QMO (EVERY 4 WEEKS), (ONCE A MONTH)
     Route: 030
     Dates: start: 20140117
  3. SANDOSTATIN LAR DEPOT [Suspect]
     Active Substance: OCTREOTIDE ACETATE
     Dosage: 20 MG, QMO
     Route: 030
     Dates: start: 20160211
  4. METOPROLOL. [Suspect]
     Active Substance: METOPROLOL
     Indication: PRODUCT USED FOR UNKNOWN INDICATION
     Dosage: 50 MG, QD
     Route: 048
  5. SANDOSTATIN [Suspect]
     Active Substance: OCTREOTIDE ACETATE
     Indication: PAIN
  6. SANDOSTATIN LAR DEPOT [Suspect]
     Active Substance: OCTREOTIDE ACETATE
     Indication: CROHN^S DISEASE
     Dosage: 10 MG, QMO
     Route: 030
     Dates: start: 20121211
  7. SANDOSTATIN LAR DEPOT [Suspect]
     Active Substance: OCTREOTIDE ACETATE
     Indication: PAIN
     Dosage: 20 MG, QMO
     Route: 030
     Dates: start: 20130214

REACTIONS (29)
  - Influenza [Unknown]
  - Abdominal pain [Recovered/Resolved]
  - Fatigue [Not Recovered/Not Resolved]
  - Fibromyalgia [Unknown]
  - Blood pressure systolic increased [Unknown]
  - Pyrexia [Unknown]
  - Myalgia [Unknown]
  - Blood iron decreased [Unknown]
  - Malaise [Unknown]
  - Constipation [Unknown]
  - Arthralgia [Unknown]
  - Needle issue [Unknown]
  - Product quality issue [Unknown]
  - Abdominal distension [Unknown]
  - Fatigue [Recovered/Resolved]
  - Cholelithiasis [Unknown]
  - Ankylosing spondylitis [Unknown]
  - Viral upper respiratory tract infection [Not Recovered/Not Resolved]
  - Heart rate increased [Unknown]
  - Back pain [Unknown]
  - Blood pressure diastolic increased [Unknown]
  - Cough [Not Recovered/Not Resolved]
  - Pain in extremity [Recovering/Resolving]
  - Herpes virus infection [Unknown]
  - Blood test abnormal [Unknown]
  - Body temperature decreased [Unknown]
  - Arthritis [Unknown]
  - Nausea [Unknown]
  - Product use in unapproved indication [Unknown]

NARRATIVE: CASE EVENT DATE: 20121115
